FAERS Safety Report 16730091 (Version 1)
Quarter: 2019Q3

REPORT INFORMATION
  Report Type: Spontaneous
  Country: US (occurrence: US)
  Receive Date: 20190822
  Receipt Date: 20190822
  Transmission Date: 20191005
  Serious: No
  Sender: FDA-Public Use
  Company Number: US-PACIRA-201400198

PATIENT
  Age: 25 Year
  Sex: Female

DRUGS (1)
  1. EXPAREL [Suspect]
     Active Substance: BUPIVACAINE
     Indication: POSTOPERATIVE ANALGESIA
     Dosage: INJECTED INTO SURGICAL SITE. UNK UNK, UNK, FREQUENCY UNK
     Route: 065

REACTIONS (1)
  - Anal incontinence [Unknown]
